FAERS Safety Report 10753562 (Version 1)
Quarter: 2015Q1

REPORT INFORMATION
  Report Type: Spontaneous
  Country: IT (occurrence: IT)
  Receive Date: 20150131
  Receipt Date: 20150131
  Transmission Date: 20150721
  Serious: Yes (Other)
  Sender: FDA-Public Use
  Company Number: IT-EMD SERONO-8006788

PATIENT
  Age: 52 Year
  Sex: Female

DRUGS (1)
  1. REBIF [Suspect]
     Active Substance: INTERFERON BETA-1A
     Indication: MULTIPLE SCLEROSIS

REACTIONS (5)
  - Peripheral venous disease [Unknown]
  - Peripheral swelling [Unknown]
  - Varicose vein [Unknown]
  - Angiopathy [Unknown]
  - Limb discomfort [Unknown]

NARRATIVE: CASE EVENT DATE: 20150101
